FAERS Safety Report 6960262-3 (Version None)
Quarter: 2010Q3

REPORT INFORMATION
  Report Type: 
  Country: None (occurrence: None)
  Receive Date: 20100901
  Receipt Date: 20100825
  Transmission Date: 20110219
  Serious: Yes (Hospitalization, Other)
  Sender: FDA-Public Use
  Company Number: US-JNJCH-2007330754

PATIENT
  Sex: Female
  Weight: 54.4 kg

DRUGS (4)
  1. ZYRTEC [Suspect]
     Indication: HYPERSENSITIVITY
     Dosage: TEXT:10 MG
     Route: 048
     Dates: start: 20070820, end: 20070801
  2. BENADRYL [Suspect]
     Indication: HYPERSENSITIVITY
     Dosage: TEXT:UNKNOWN
     Route: 042
  3. CHANTIX [Suspect]
     Indication: EX-TOBACCO USER
     Dosage: TEXT:UNKNOWN
     Route: 048
     Dates: start: 20070730, end: 20070814
  4. HYDROCODONE [Concomitant]
     Indication: PRODUCT USED FOR UNKNOWN INDICATION
     Dosage: TEXT:UNKNOWN
     Route: 065

REACTIONS (10)
  - DIZZINESS [None]
  - HYPERSENSITIVITY [None]
  - NAUSEA [None]
  - OROPHARYNGEAL PAIN [None]
  - POOR VENOUS ACCESS [None]
  - SKIN EXFOLIATION [None]
  - SOMNOLENCE [None]
  - STEVENS-JOHNSON SYNDROME [None]
  - TREMOR [None]
  - WHITE BLOOD CELL COUNT DECREASED [None]
